FAERS Safety Report 8896104 (Version 1)
Quarter: 2012Q4

REPORT INFORMATION
  Report Type: 
  Country: US (occurrence: US)
  Receive Date: 20121108
  Receipt Date: 20121108
  Transmission Date: 20130627
  Serious: Yes (Death)
  Sender: FDA-Public Use
  Company Number: US-009507513-1211USA002848

PATIENT
  Sex: Male

DRUGS (3)
  1. VICTRELIS [Suspect]
     Dosage: 800 mg, q8h
     Route: 048
  2. NADOLOL [Concomitant]
  3. OMEPRAZOLE [Concomitant]

REACTIONS (1)
  - General symptom [Fatal]
